FAERS Safety Report 8557524 (Version 5)
Quarter: 2018Q4

REPORT INFORMATION
  Report Type: Spontaneous
  Country: FR (occurrence: FR)
  Receive Date: 20120511
  Receipt Date: 20181205
  Transmission Date: 20190205
  Serious: Yes (Life-Threatening, Hospitalization, Other)
  Sender: FDA-Public Use
  Company Number: FR-UCBSA-056801

PATIENT
  Age: 47 Year
  Sex: Male

DRUGS (27)
  1. TRIATEC (RAMIPRIL) [Suspect]
     Active Substance: RAMIPRIL
     Indication: HYPERTENSION
     Dosage: 2.5 MG, ONCE DAILY (QD)
     Route: 048
     Dates: start: 20120308, end: 20120409
  2. LASILIX [Concomitant]
     Active Substance: FUROSEMIDE
     Indication: PRODUCT USED FOR UNKNOWN INDICATION
     Dosage: 20
  3. PARACETAMOL [Concomitant]
     Active Substance: ACETAMINOPHEN
     Indication: PRODUCT USED FOR UNKNOWN INDICATION
  4. CLAFORAN [Suspect]
     Active Substance: CEFOTAXIME SODIUM
     Indication: DEVICE RELATED SEPSIS
     Dosage: 3 G, 6X/DAY
     Route: 042
     Dates: start: 20120321, end: 20120408
  5. ATENOLOL. [Concomitant]
     Active Substance: ATENOLOL
     Indication: HYPERTENSION
  6. CATAPRESSAN [Concomitant]
     Active Substance: CLONIDINE
     Indication: HYPERTENSION
  7. MIDAZOLAM [Concomitant]
     Active Substance: MIDAZOLAM HYDROCHLORIDE
     Indication: PRODUCT USED FOR UNKNOWN INDICATION
     Dates: start: 20120302, end: 20120311
  8. SUFENTA [Concomitant]
     Active Substance: SUFENTANIL CITRATE
     Indication: PRODUCT USED FOR UNKNOWN INDICATION
     Dates: start: 20120302, end: 20120307
  9. ESIDREX [Suspect]
     Active Substance: HYDROCHLOROTHIAZIDE
     Indication: HYPERTENSION
     Dosage: 25 MG, ONCE DAILY (QD)
     Route: 048
     Dates: start: 20120320, end: 20120409
  10. EUPRESSYL [Concomitant]
     Active Substance: URAPIDIL
     Indication: HYPERTENSION
     Route: 042
     Dates: start: 20120302, end: 20120307
  11. EUPRESSYL [Concomitant]
     Active Substance: URAPIDIL
     Indication: HYPERTENSION
     Dates: start: 20120313, end: 20120313
  12. EUPRESSYL [Concomitant]
     Active Substance: URAPIDIL
     Dosage: 90 MG  TWICE DAILY ORAL AND THEN 60 MG TWICE DAILY ORAL
     Route: 048
     Dates: start: 20120326, end: 20120401
  13. DIPRIVAN [Concomitant]
     Active Substance: PROPOFOL
     Indication: PRODUCT USED FOR UNKNOWN INDICATION
     Dates: start: 20120302, end: 20120308
  14. VANCOMYCINE [Concomitant]
     Active Substance: VANCOMYCIN
     Indication: PRODUCT USED FOR UNKNOWN INDICATION
     Dosage: 2 G DAILY
     Dates: start: 20120318, end: 20120321
  15. ESOMEPRAZOLE. [Concomitant]
     Active Substance: ESOMEPRAZOLE MAGNESIUM
     Indication: PRODUCT USED FOR UNKNOWN INDICATION
  16. LOXEN [NICARDIPINE HYDROCHLORIDE] [Concomitant]
     Active Substance: NICARDIPINE HYDROCHLORIDE
     Indication: HYPERTENSION
     Dosage: UNKNOWN DOSE
     Route: 042
     Dates: start: 20120304, end: 20120307
  17. CATAPRESSAN [Concomitant]
     Active Substance: CLONIDINE
     Indication: HYPERTENSION
     Dosage: UNKNOWN DOSE
     Route: 042
     Dates: start: 20120306, end: 20120312
  18. EUPRESSYL [Concomitant]
     Active Substance: URAPIDIL
     Dosage: 90 MG, 2X/DAY (BID)
     Route: 048
     Dates: start: 20120410
  19. INEXIUM [Concomitant]
     Active Substance: ESOMEPRAZOLE
     Indication: PRODUCT USED FOR UNKNOWN INDICATION
     Dates: start: 20120302, end: 20120322
  20. IMIPENEM AND CILASTATIN [Concomitant]
     Active Substance: CILASTATIN SODIUM\IMIPENEM
     Indication: INFECTION
  21. KEPPRA [Suspect]
     Active Substance: LEVETIRACETAM
     Indication: PRODUCT USED FOR UNKNOWN INDICATION
     Dosage: 500 MG DAILY DOSE
     Route: 042
     Dates: start: 20120318, end: 20121218
  22. AUGMENTIN [Concomitant]
     Active Substance: AMOXICILLIN\CLAVULANATE POTASSIUM
     Indication: PRODUCT USED FOR UNKNOWN INDICATION
     Dates: start: 20120306, end: 20120311
  23. LOXEN [NICARDIPINE HYDROCHLORIDE] [Concomitant]
     Active Substance: NICARDIPINE HYDROCHLORIDE
     Indication: HYPERTENSION
     Dosage: LOXEN LP
     Route: 048
     Dates: start: 20120310
  24. LOVENOX [Concomitant]
     Active Substance: ENOXAPARIN SODIUM
     Indication: PRODUCT USED FOR UNKNOWN INDICATION
     Dosage: 0.4
     Dates: start: 20120326
  25. KEPPRA [Suspect]
     Active Substance: LEVETIRACETAM
     Indication: PRODUCT USED FOR UNKNOWN INDICATION
     Dosage: 500MG DAILY
     Route: 048
     Dates: start: 20120319, end: 20120406
  26. ATENOLOL. [Concomitant]
     Active Substance: ATENOLOL
     Indication: HYPERTENSION
     Dosage: 50 MG, 2X/DAY (BID)
     Route: 048
     Dates: start: 20120313
  27. TIENAM [Concomitant]
     Active Substance: CILASTATIN SODIUM\IMIPENEM
     Dosage: 500 MG, 4X/DAY (QID)
     Dates: start: 20120318, end: 20120321

REACTIONS (4)
  - Neutropenia [Recovered/Resolved]
  - Leukopenia [Recovered/Resolved]
  - Agranulocytosis [Recovered/Resolved]
  - Enterobacter infection [Unknown]

NARRATIVE: CASE EVENT DATE: 20120321
